FAERS Safety Report 23233145 (Version 5)
Quarter: 2024Q1

REPORT INFORMATION
  Report Type: Spontaneous
  Country: US (occurrence: US)
  Receive Date: 20231128
  Receipt Date: 20240328
  Transmission Date: 20240410
  Serious: No
  Sender: FDA-Public Use
  Company Number: US-SA-2023SA344593

PATIENT
  Age: 22 Year
  Sex: Male

DRUGS (2)
  1. DUPIXENT [Suspect]
     Active Substance: DUPILUMAB
     Indication: Dermatitis atopic
     Dosage: 600 MG, 1X
     Route: 058
     Dates: start: 20231022, end: 20231022
  2. DUPIXENT [Suspect]
     Active Substance: DUPILUMAB
     Indication: Eczema
     Dosage: 300 MG, QOW
     Route: 058
     Dates: start: 20231107

REACTIONS (7)
  - Acne [Recovered/Resolved]
  - Food allergy [Unknown]
  - Dermatitis atopic [Unknown]
  - Rash [Unknown]
  - Eczema [Unknown]
  - Therapeutic response decreased [Unknown]
  - Erythema [Unknown]

NARRATIVE: CASE EVENT DATE: 20230101
